FAERS Safety Report 7537684-5 (Version None)
Quarter: 2011Q2

REPORT INFORMATION
  Report Type: 
  Country: None (occurrence: None)
  Receive Date: 20110609
  Receipt Date: 20071008
  Transmission Date: 20111010
  Serious: Yes (Life-Threatening, Hospitalization)
  Sender: FDA-Public Use
  Company Number: PHEH2007US13338

PATIENT
  Sex: Male

DRUGS (1)
  1. LOTREL [Suspect]
     Dosage: 10/20 MG, UNK
     Route: 048

REACTIONS (1)
  - COLON CANCER [None]
